FAERS Safety Report 8876460 (Version 1)
Quarter: 2012Q4

REPORT INFORMATION
  Report Type: 
  Country: GB (occurrence: GB)
  Receive Date: 20121031
  Receipt Date: 20121031
  Transmission Date: 20130627
  Serious: Yes (Hospitalization)
  Sender: FDA-Public Use
  Company Number: GB-UCBSA-069769

PATIENT
  Age: 57 Year
  Sex: Female
  Weight: 85 kg

DRUGS (7)
  1. CERTOLIZUMAB PEGOL [Suspect]
     Indication: RHEUMATOID ARTHRITIS
     Route: 058
     Dates: start: 20100715, end: 20100803
  2. METFORMIN [Concomitant]
     Dates: start: 20090218
  3. THYROXINE [Concomitant]
     Dosage: DAILY DOSE: 150 MICROGRAM
     Dates: start: 19980101
  4. SULFASALAZINE [Concomitant]
     Dosage: DAILY DOSE: 1 GM
     Dates: start: 20081014
  5. HYDROXYCHLOROQUINE [Concomitant]
     Dosage: DAILY DOSE: 200MG
     Dates: start: 20081223
  6. PRAVASTATIN [Concomitant]
     Dosage: DAILY DOSE: 200 MG
     Dates: start: 20100616
  7. QUETIAPINE FUMARATE [Concomitant]
     Dosage: DAILY DOSE: 50 MG
     Dates: start: 20100616

REACTIONS (1)
  - Depression [Recovering/Resolving]
